FAERS Safety Report 24414368 (Version 1)
Quarter: 2024Q4

REPORT INFORMATION
  Report Type: Spontaneous
  Country: JP (occurrence: JP)
  Receive Date: 20241009
  Receipt Date: 20241009
  Transmission Date: 20250115
  Serious: Yes (Hospitalization, Other)
  Sender: AMGEN
  Company Number: JP-AMGEN-JPNSP2024196000

PATIENT

DRUGS (2)
  1. ROMOSOZUMAB [Suspect]
     Active Substance: ROMOSOZUMAB
     Indication: Osteoporosis
     Dosage: 210 MILLIGRAM, QMO
     Route: 065
  2. TERIPARATIDE [Suspect]
     Active Substance: TERIPARATIDE
     Indication: Osteoporosis
     Dosage: 20 MICROGRAM, ONCE DAILY, 28.2 MICROGRAM, TWICE WEEKLY OR 56.5 MICROGRAM, ONCE WEEKLY
     Route: 065

REACTIONS (13)
  - Hip fracture [Unknown]
  - Cardiac failure [Unknown]
  - Cerebrovascular accident [Unknown]
  - Myocardial infarction [Unknown]
  - Pelvic fracture [Unknown]
  - Femur fracture [Unknown]
  - Lower limb fracture [Unknown]
  - Ankle fracture [Unknown]
  - Shoulder fracture [Unknown]
  - Upper limb fracture [Unknown]
  - Forearm fracture [Unknown]
  - Wrist fracture [Unknown]
  - Cardiac disorder [Unknown]
